FAERS Safety Report 4767874-6 (Version None)
Quarter: 2005Q3

REPORT INFORMATION
  Report Type: 
  Country: None (occurrence: None)
  Receive Date: 20050912
  Receipt Date: 20050902
  Transmission Date: 20060218
  Serious: Yes (Hospitalization)
  Sender: FDA-Public Use
  Company Number: KII-2005-0018515

PATIENT
  Age: 30 Year
  Sex: Female

DRUGS (2)
  1. MORPHINE SULFATE [Suspect]
     Indication: SURGERY
     Dosage: SEE TEXT, ORAL
     Route: 048
  2. DIPHENHYDRAMINE HCL [Suspect]
     Indication: SURGERY
     Dosage: SINGLE, ORAL
     Route: 048

REACTIONS (2)
  - AGITATION [None]
  - DRUG EXPOSURE DURING PREGNANCY [None]
